FAERS Safety Report 22046322 (Version 4)
Quarter: 2023Q2

REPORT INFORMATION
  Report Type: Spontaneous
  Country: CH (occurrence: CH)
  Receive Date: 20230228
  Receipt Date: 20230531
  Transmission Date: 20230722
  Serious: Yes (Hospitalization, Other)
  Sender: FDA-Public Use
  Company Number: CH-BRISTOL-MYERS SQUIBB COMPANY-2023-019333

PATIENT
  Age: 71 Year
  Sex: Male
  Weight: 73 kg

DRUGS (10)
  1. OPDUALAG [Suspect]
     Active Substance: NIVOLUMAB\RELATLIMAB-RMBW
     Indication: Metastatic malignant melanoma
     Dosage: DOSE : 160/480 MG.;     FREQ : 4-WEEKLY
     Route: 042
     Dates: start: 20230109, end: 20230224
  2. ELIQUIS [Concomitant]
     Active Substance: APIXABAN
     Indication: Atrial fibrillation
     Route: 048
     Dates: end: 20230220
  3. DAPAGLIFLOZIN [Concomitant]
     Active Substance: DAPAGLIFLOZIN
     Indication: Cardiac valve disease
     Route: 048
     Dates: end: 202302
  4. HC HYDROCORTISON [Concomitant]
     Indication: Immune-mediated arthritis
     Dosage: HYDROCORTISON 30 MG PERIORAL DAILY FOR IMMUNE-RELATED ARTHRITIS (FIRST DIAGNOSED JUN-2022)
     Route: 048
  5. NOVALGIN (METAMIZOLE SODIUM) [Concomitant]
     Active Substance: METAMIZOLE SODIUM
     Indication: Pain
     Route: 048
  6. METOCLOPRAMIDE HYDROCHLORIDE [Concomitant]
     Active Substance: METOCLOPRAMIDE HYDROCHLORIDE
     Indication: Nausea
     Route: 048
  7. PEG [PREGABALIN] [Concomitant]
     Indication: Product used for unknown indication
     Route: 048
  8. LISINOPRIL [Concomitant]
     Active Substance: LISINOPRIL
     Indication: Cardiac valve disease
     Route: 048
     Dates: end: 202302
  9. PREDNISOLONE [Concomitant]
     Active Substance: PREDNISOLONE
     Indication: Product used for unknown indication
     Route: 048
     Dates: end: 202302
  10. MAGNESIUM [Concomitant]
     Active Substance: MAGNESIUM
     Indication: Product used for unknown indication
     Route: 048
     Dates: end: 202302

REACTIONS (4)
  - Cancer pain [Recovered/Resolved]
  - Ascites [Unknown]
  - Hepatic haemorrhage [Unknown]
  - Metastases to peritoneum [Unknown]

NARRATIVE: CASE EVENT DATE: 20230128
